FAERS Safety Report 18716812 (Version 1)
Quarter: 2021Q1

REPORT INFORMATION
  Report Type: Spontaneous
  Country: NL (occurrence: NL)
  Receive Date: 20210108
  Receipt Date: 20210108
  Transmission Date: 20210419
  Serious: Yes (Hospitalization)
  Sender: FDA-Public Use
  Company Number: NL-AMGEN-NLDSP2020213447

PATIENT
  Age: 65 Year
  Sex: Male

DRUGS (5)
  1. CAPECITABINE. [Suspect]
     Active Substance: CAPECITABINE
     Indication: COLORECTAL CANCER METASTATIC
     Dosage: 2000 MILLIGRAM
     Route: 048
     Dates: start: 20201125, end: 20201129
  2. CAPECITABINE. [Suspect]
     Active Substance: CAPECITABINE
     Dosage: 1500 MILLIGRAM
     Route: 048
     Dates: start: 20201203, end: 20201205
  3. CAPECITABINE. [Suspect]
     Active Substance: CAPECITABINE
     Dosage: 1500 MILLIGRAM
     Route: 048
     Dates: start: 20201207, end: 20201209
  4. OXALIPLATIN. [Suspect]
     Active Substance: OXALIPLATIN
     Indication: COLORECTAL CANCER METASTATIC
     Dosage: UNK
     Route: 065
     Dates: start: 20201125, end: 20201205
  5. BEVACIZUMAB. [Suspect]
     Active Substance: BEVACIZUMAB
     Indication: COLORECTAL CANCER METASTATIC
     Dosage: UNK
     Route: 065
     Dates: start: 20201125

REACTIONS (4)
  - SARS-CoV-2 test false positive [Recovered/Resolved]
  - Pyrexia [Recovered/Resolved]
  - Diarrhoea [Recovered/Resolved]
  - Weight decreased [Recovered/Resolved]

NARRATIVE: CASE EVENT DATE: 20201129
